FAERS Safety Report 6769165-0 (Version None)
Quarter: 2010Q2

REPORT INFORMATION
  Report Type: 
  Country: None (occurrence: None)
  Receive Date: 20100615
  Receipt Date: 20100601
  Transmission Date: 20101027
  Serious: Yes (Other)
  Sender: FDA-Public Use
  Company Number: US-RB-011435-10

PATIENT
  Age: 75 Year
  Sex: Female

DRUGS (2)
  1. MUCINEX DM [Suspect]
     Indication: RESPIRATORY TRACT CONGESTION
     Dosage: TOOK ONE TABLET PER DOSE THEN TWO TABLETS PER DOSE, EVERY 12 HOURS, TOOK PRODUCT FOR 6 DAYS
     Route: 048
     Dates: start: 20100501
  2. MUCINEX DM [Suspect]
     Indication: COUGH
     Dosage: TOOK ONE TABLET PER DOSE THEN TWO TABLETS PER DOSE, EVERY 12 HOURS, TOOK PRODUCT FOR 6 DAYS
     Route: 048
     Dates: start: 20100525

REACTIONS (3)
  - DIARRHOEA [None]
  - DRUG INEFFECTIVE [None]
  - FAECES DISCOLOURED [None]
